FAERS Safety Report 12158552 (Version 1)
Quarter: 2016Q1

REPORT INFORMATION
  Report Type: Spontaneous
  Country: US (occurrence: US)
  Receive Date: 20160308
  Receipt Date: 20160308
  Transmission Date: 20160526
  Serious: No
  Sender: FDA-Public Use
  Company Number: US-JNJFOC-20160112055

PATIENT
  Age: 22 Month
  Sex: Male
  Weight: 10.89 kg

DRUGS (2)
  1. INFANTS TYLENOL [Suspect]
     Active Substance: ACETAMINOPHEN
     Indication: PYREXIA
     Dosage: ONCE
     Route: 048
     Dates: start: 20160113, end: 20160113
  2. INFANTS TYLENOL [Suspect]
     Active Substance: ACETAMINOPHEN
     Indication: TEETHING
     Dosage: ONCE
     Route: 048
     Dates: start: 20160113, end: 20160113

REACTIONS (4)
  - Vomiting [Unknown]
  - Off label use [Unknown]
  - Product physical issue [Unknown]
  - Product use issue [Unknown]

NARRATIVE: CASE EVENT DATE: 20160113
